FAERS Safety Report 9414465 (Version 1)
Quarter: 2013Q3

REPORT INFORMATION
  Report Type: Spontaneous
  Country: US (occurrence: US)
  Receive Date: 20130723
  Receipt Date: 20130723
  Transmission Date: 20140515
  Serious: Yes (Hospitalization, Other)
  Sender: FDA-Public Use
  Company Number: US-ASTRAZENECA-2013SE52782

PATIENT
  Sex: Female

DRUGS (4)
  1. BRILINTA [Suspect]
     Indication: CORONARY ARTERIAL STENT INSERTION
     Route: 048
     Dates: start: 2013, end: 2013
  2. BRILINTA [Suspect]
     Indication: CORONARY ARTERIAL STENT INSERTION
     Route: 048
     Dates: start: 2013
  3. ANGIOMAX [Concomitant]
     Route: 042
  4. ANGIOMAX [Concomitant]
     Route: 042

REACTIONS (1)
  - Device occlusion [Unknown]
